FAERS Safety Report 9500512 (Version 1)
Quarter: 2013Q3

REPORT INFORMATION
  Report Type: Spontaneous
  Country: US (occurrence: None)
  Receive Date: 20130904
  Receipt Date: 20130904
  Transmission Date: 20140515
  Serious: Yes (Other)
  Sender: FDA-Public Use
  Company Number: None

PATIENT
  Age: 68 None
  Sex: Male

DRUGS (6)
  1. TERBINAFINE [Suspect]
     Indication: ONYCHOMYCOSIS
     Dosage: 250 MG 30 1 DAILY MOUTH
     Route: 048
     Dates: start: 20130714, end: 20130801
  2. BENAZER HCT [Concomitant]
  3. METIFOMIN [Concomitant]
  4. FENOFIBRATE [Concomitant]
  5. XANAX [Concomitant]
  6. GINSENG [Concomitant]

REACTIONS (5)
  - Ageusia [None]
  - Anosmia [None]
  - Weight decreased [None]
  - Blood glucose decreased [None]
  - Blood pressure increased [None]
